FAERS Safety Report 9927898 (Version 1)
Quarter: 2014Q1

REPORT INFORMATION
  Report Type: Spontaneous
  Country: US (occurrence: US)
  Receive Date: 20140227
  Receipt Date: 20140227
  Transmission Date: 20141002
  Serious: No
  Sender: FDA-Public Use
  Company Number: US-PFIZER INC-2014052573

PATIENT
  Sex: Female
  Weight: 55.33 kg

DRUGS (3)
  1. ADVIL [Suspect]
     Indication: BACK DISORDER
     Dosage: TWO TABLETS AT EVERY 4 HOUR
     Route: 048
  2. ADVIL [Suspect]
     Indication: SCOLIOSIS
  3. BABY ASPIRIN [Concomitant]
     Indication: CARDIAC DISORDER
     Dosage: 81 MG, DAILY

REACTIONS (4)
  - Overdose [Unknown]
  - Poor quality drug administered [Unknown]
  - Medication residue present [Unknown]
  - Product colour issue [Unknown]
